FAERS Safety Report 13362863 (Version 1)
Quarter: 2017Q1

REPORT INFORMATION
  Report Type: Spontaneous
  Country: GB (occurrence: GB)
  Receive Date: 20170323
  Receipt Date: 20170323
  Transmission Date: 20170429
  Serious: Yes (Other)
  Sender: FDA-Public Use
  Company Number: GB-DEXPHARM-20170341

PATIENT
  Age: 55 Year
  Sex: Female
  Weight: 71 kg

DRUGS (6)
  1. OMEPRAZOLE. [Suspect]
     Active Substance: OMEPRAZOLE
     Dates: start: 20170228
  2. CETRABEN EMOLLIENT CREAM [Concomitant]
     Dosage: APPLY REGULARLY DURING THE DAY TO ALL AREAS.
     Dates: start: 20170228
  3. BETAMETHASONE VALERATE. [Concomitant]
     Active Substance: BETAMETHASONE VALERATE
     Indication: ECZEMA
     Dosage: APPLY 1-2 TIMES/DAY TO INFLAMED ITCHY AREAS OF ECZEMA.
     Dates: start: 20170228
  4. ATORVASTATIN [Concomitant]
     Active Substance: ATORVASTATIN
     Dosage: DAILY DOSE: 1 DF DOSAGE FORM EVERY DAYS
     Dates: start: 20161111
  5. HYDROMOL CREAM [Concomitant]
     Dosage: USE INSTEAD OF SOAP AND APPLY LIBERALLY AT NIGHT.
     Dates: start: 20170228
  6. RAMIPRIL. [Concomitant]
     Active Substance: RAMIPRIL
     Dosage: DAILY DOSE: 1 DF DOSAGE FORM EVERY DAYS
     Dates: start: 20161130

REACTIONS (1)
  - Arthralgia [Recovered/Resolved]

NARRATIVE: CASE EVENT DATE: 20170303
